FAERS Safety Report 14377543 (Version 3)
Quarter: 2018Q1

REPORT INFORMATION
  Report Type: Spontaneous
  Country: US (occurrence: US)
  Receive Date: 20180111
  Receipt Date: 20180301
  Transmission Date: 20180509
  Serious: No
  Sender: FDA-Public Use
  Company Number: US-PFIZER INC-2018013990

PATIENT
  Age: 57 Year
  Sex: Female

DRUGS (1)
  1. XELJANZ XR [Suspect]
     Active Substance: TOFACITINIB CITRATE
     Dosage: 11 MG, UNK
     Dates: start: 201712

REACTIONS (11)
  - Dry throat [Unknown]
  - Drug ineffective [Not Recovered/Not Resolved]
  - Dry skin [Unknown]
  - Tongue pruritus [Unknown]
  - Oropharyngeal pain [Unknown]
  - Dry mouth [Not Recovered/Not Resolved]
  - Dyspepsia [Unknown]
  - Headache [Unknown]
  - Dry eye [Unknown]
  - Productive cough [Unknown]
  - Pruritus [Unknown]
